FAERS Safety Report 17072824 (Version 5)
Quarter: 2020Q2

REPORT INFORMATION
  Report Type: Spontaneous
  Country: GB (occurrence: GB)
  Receive Date: 20191125
  Receipt Date: 20200429
  Transmission Date: 20200713
  Serious: Yes (Hospitalization)
  Sender: FDA-Public Use
  Company Number: GB-PFIZER INC-2019505034

PATIENT
  Age: 57 Year
  Sex: Female
  Weight: 59 kg

DRUGS (2)
  1. GEMCITABINE HYDROCHLORIDE. [Suspect]
     Active Substance: GEMCITABINE HYDROCHLORIDE
     Indication: BRAIN NEOPLASM
     Dosage: 1558 MG (STRENGTH: 1000 MG DOSE: 1000 MILLIGRAM/SQ. METER)
     Route: 042
     Dates: start: 20190912, end: 20190912
  2. CISPLATIN. [Suspect]
     Active Substance: CISPLATIN
     Indication: BRAIN NEOPLASM
     Dosage: 39 MG (STRENGTH: 39 MG DOSE: 30 MG/M2)
     Route: 042
     Dates: start: 20190912, end: 20190912

REACTIONS (4)
  - Pyrexia [Recovered/Resolved]
  - Diarrhoea [Recovering/Resolving]
  - Off label use [Unknown]
  - Product use in unapproved indication [Unknown]

NARRATIVE: CASE EVENT DATE: 20190912
